FAERS Safety Report 8275426-9 (Version None)
Quarter: 2012Q2

REPORT INFORMATION
  Report Type: 
  Country: None (occurrence: None)
  Receive Date: 20120411
  Receipt Date: 20120320
  Transmission Date: 20120825
  Serious: Yes (Hospitalization, Disabling)
  Sender: FDA-Public Use
  Company Number: PHEH2011US008758

PATIENT
  Sex: Female
  Weight: 84.22 kg

DRUGS (3)
  1. EXJADE [Suspect]
     Dosage: 3500 MG DAILY
     Route: 048
  2. EXJADE [Suspect]
     Indication: IRON OVERLOAD
     Dosage: 3500 MG, DAILY
     Route: 048
     Dates: start: 20080501
  3. EXJADE [Suspect]
     Indication: SICKLE CELL ANAEMIA
     Dosage: 3000 MG, DAILY
     Route: 048
     Dates: start: 20100514, end: 20111025

REACTIONS (7)
  - PAIN IN EXTREMITY [None]
  - BACK PAIN [None]
  - PYREXIA [None]
  - SICKLE CELL ANAEMIA WITH CRISIS [None]
  - DEVICE RELATED INFECTION [None]
  - BONE PAIN [None]
  - PAIN [None]
